FAERS Safety Report 12769465 (Version 1)
Quarter: 2016Q3

REPORT INFORMATION
  Report Type: Spontaneous
  Country: TR (occurrence: TR)
  Receive Date: 20160921
  Receipt Date: 20160921
  Transmission Date: 20161109
  Serious: Yes (Other)
  Sender: FDA-Public Use
  Company Number: TR-BAXTER-2016BAX047957

PATIENT
  Sex: Male
  Weight: 3.25 kg

DRUGS (13)
  1. MAGNESIUM SULFATE. [Suspect]
     Active Substance: MAGNESIUM SULFATE
     Indication: PRODUCT USED FOR UNKNOWN INDICATION
     Dosage: 20 MEQ/KG
     Route: 042
  2. VANCOMYCIN [Concomitant]
     Active Substance: VANCOMYCIN
     Indication: PRODUCT USED FOR UNKNOWN INDICATION
     Dosage: 10 MG/KG PER DOSE-12 HOURS INTERVAL
     Route: 042
  3. NORMAL SALINE [Concomitant]
     Active Substance: SODIUM CHLORIDE
     Indication: PRODUCT USED FOR UNKNOWN INDICATION
     Dosage: 20 ML/KG
     Route: 065
  4. FUROSEMIDE. [Concomitant]
     Active Substance: FUROSEMIDE
     Indication: POLYURIA
     Route: 065
  5. CALCIUM GLUCONATE. [Concomitant]
     Active Substance: CALCIUM GLUCONATE
     Indication: HYPERMAGNESAEMIA
     Route: 042
  6. AMPICILLIN [Concomitant]
     Active Substance: AMPICILLIN
     Indication: TACHYPNOEA
     Dosage: 50 MG/KG PER DOSE-12 HOURS INTERVAL
     Route: 065
  7. DOBUTAMINE [Suspect]
     Active Substance: DOBUTAMINE\DOBUTAMINE HYDROCHLORIDE
     Indication: PRODUCT USED FOR UNKNOWN INDICATION
     Dosage: 10 MCG/KG PER MINUTE
     Route: 065
  8. DEXTROSE. [Concomitant]
     Active Substance: DEXTROSE
     Indication: RESPIRATORY DISTRESS
     Dosage: 60 ML/KG/DAY
     Route: 065
  9. CEFTAZIDIME. [Concomitant]
     Active Substance: CEFTAZIDIME
     Indication: PRODUCT USED FOR UNKNOWN INDICATION
     Dosage: 30 MG/KG PER DOSE-12 HOURS INTERVAL
     Route: 042
  10. GENTAMICIN. [Concomitant]
     Active Substance: GENTAMICIN
     Indication: TACHYPNOEA
     Route: 065
  11. DOPAMINE [Concomitant]
     Active Substance: DOPAMINE\DOPAMINE HYDROCHLORIDE
     Indication: PRODUCT USED FOR UNKNOWN INDICATION
     Route: 065
  12. MAGNESIUM SULFATE. [Suspect]
     Active Substance: MAGNESIUM SULFATE
     Dosage: 8 MEQ/KG/HOUR
     Route: 041
  13. NORMAL SALINE [Concomitant]
     Active Substance: SODIUM CHLORIDE
     Indication: HYPERMAGNESAEMIA
     Route: 040

REACTIONS (1)
  - Pulmonary hypertension [Unknown]
